FAERS Safety Report 8495779 (Version 8)
Quarter: 2013Q2

REPORT INFORMATION
  Report Type: Spontaneous
  Country: US (occurrence: US)
  Receive Date: 20120405
  Receipt Date: 20130618
  Transmission Date: 20140414
  Serious: Yes (Hospitalization, Other)
  Sender: FDA-Public Use
  Company Number: US-ROCHE-1053376

PATIENT
  Age: 17 Year
  Sex: Male

DRUGS (1)
  1. RITUXAN [Suspect]
     Indication: THROMBOTIC THROMBOCYTOPENIC PURPURA
     Dosage: DOSE:641 MG IN 64/CC
     Route: 042
     Dates: start: 2003, end: 2005

REACTIONS (7)
  - Myelitis transverse [Unknown]
  - Enterovirus infection [Unknown]
  - Quadriplegia [Unknown]
  - Pneumonia [Unknown]
  - Acute respiratory failure [Unknown]
  - Injury [Unknown]
  - Depression [Unknown]
